FAERS Safety Report 4331602-9 (Version None)
Quarter: 2004Q1

REPORT INFORMATION
  Report Type: 
  Country: None (occurrence: None)
  Receive Date: 20040331
  Receipt Date: 20040312
  Transmission Date: 20041129
  Serious: Yes (Hospitalization)
  Sender: FDA-Public Use
  Company Number: DE_040313197

PATIENT
  Age: 72 Year
  Sex: Male

DRUGS (3)
  1. GEMZAR [Suspect]
     Indication: NON-SMALL CELL LUNG CANCER
     Dosage: 1000 MG/M2
     Dates: start: 20031201, end: 20040101
  2. CARBOPLATIN [Concomitant]
  3. RADIATION THERAPY [Concomitant]

REACTIONS (3)
  - MYOSITIS [None]
  - RADIATION INJURY [None]
  - RECALL PHENOMENON [None]
